FAERS Safety Report 17223879 (Version 1)
Quarter: 2020Q1

REPORT INFORMATION
  Report Type: Spontaneous
  Country: GB (occurrence: GB)
  Receive Date: 20200102
  Receipt Date: 20200102
  Transmission Date: 20200409
  Serious: Yes (Other)
  Sender: FDA-Public Use
  Company Number: GB-TEVA-2019-GB-1160187

PATIENT
  Age: 60 Year
  Sex: Female
  Weight: 38.4 kg

DRUGS (2)
  1. KLIOVANCE [Concomitant]
     Active Substance: ESTRADIOL\NORETHINDRONE ACETATE
  2. VORICONAZOLE. [Suspect]
     Active Substance: VORICONAZOLE
     Indication: FUNGAL INFECTION
     Dosage: 400MG 1 DAY THEN 200MG DAILY 6WEEKS
     Route: 048
     Dates: start: 20191118

REACTIONS (4)
  - Vision blurred [Recovering/Resolving]
  - Photopsia [Recovered/Resolved]
  - Dyschromatopsia [Recovering/Resolving]
  - Visual brightness [Not Recovered/Not Resolved]

NARRATIVE: CASE EVENT DATE: 20191118
